FAERS Safety Report 6629305-0 (Version None)
Quarter: 2010Q1

REPORT INFORMATION
  Report Type: 
  Country: None (occurrence: None)
  Receive Date: 20100311
  Receipt Date: 20090804
  Transmission Date: 20100710
  Serious: No
  Sender: FDA-Public Use
  Company Number: US-BIOGENIDEC-2009BI024285

PATIENT
  Age: 55 Year
  Sex: Female

DRUGS (2)
  1. AVONEX [Suspect]
     Indication: MULTIPLE SCLEROSIS
     Route: 030
     Dates: start: 20090713
  2. ARICEPT [Concomitant]
     Indication: MULTIPLE SCLEROSIS
     Route: 048

REACTIONS (6)
  - BACTERIAL TEST POSITIVE [None]
  - COUGH [None]
  - HEADACHE [None]
  - INFLUENZA LIKE ILLNESS [None]
  - PARANOIA [None]
  - PULMONARY OEDEMA [None]
